FAERS Safety Report 10071208 (Version 1)
Quarter: 2014Q2

REPORT INFORMATION
  Report Type: Spontaneous
  Country: US (occurrence: US)
  Receive Date: 20140410
  Receipt Date: 20140410
  Transmission Date: 20141212
  Serious: No
  Sender: FDA-Public Use
  Company Number: US-BAYER-2014-047286

PATIENT
  Age: 80 Year
  Sex: Female
  Weight: 58.96 kg

DRUGS (5)
  1. ALEVE TABLET [Suspect]
     Dosage: 1/2 DF , ONCE
     Route: 048
     Dates: start: 20140326, end: 20140326
  2. BAYER GENUINE ASPIRIN ORIGINAL STRENGTH [Suspect]
     Route: 048
  3. BENICAR [Concomitant]
  4. PREMARIN [Concomitant]
  5. PEPTO BISMOL [Concomitant]

REACTIONS (5)
  - Abdominal pain upper [Recovered/Resolved]
  - Abdominal pain upper [Recovered/Resolved]
  - Intentional product misuse [None]
  - Epigastric discomfort [Recovered/Resolved]
  - Epigastric discomfort [Recovered/Resolved]
